FAERS Safety Report 9533946 (Version 1)
Quarter: 2013Q2

REPORT INFORMATION
  Report Type: Spontaneous
  Country: US (occurrence: None)
  Receive Date: 20130423
  Receipt Date: 20130423
  Transmission Date: 20140414
  Serious: Yes (Other)
  Sender: FDA-Public Use
  Company Number: 1301USA012530

PATIENT
  Age: 62 Year
  Sex: Male

DRUGS (11)
  1. TEMODAR [Suspect]
     Route: 048
  2. DEXAMETHASONE [Concomitant]
  3. PHENYTOIN [Concomitant]
  4. ACETAMINOPHEN (+) HYDROCODONE BITARTRATE [Concomitant]
  5. ESOMEPRAZOLE [Concomitant]
  6. LANTUS (INSULIN GLARGINE) [Concomitant]
  7. INSULIN GLULISINE [Concomitant]
  8. LEVETIRACETAM [Concomitant]
  9. DONEPEZIL HYDROCHLORIDE [Concomitant]
  10. METFORMIN [Concomitant]
  11. AMLODIPINE BESYLATE (+) BENAZEPRIL HYDROCHLORIDE [Concomitant]

REACTIONS (2)
  - Aphasia [None]
  - Dysstasia [None]
